FAERS Safety Report 10247440 (Version 1)
Quarter: 2014Q2

REPORT INFORMATION
  Report Type: Spontaneous
  Country: GB (occurrence: GB)
  Receive Date: 20140619
  Receipt Date: 20140619
  Transmission Date: 20141212
  Serious: Yes (Hospitalization)
  Sender: FDA-Public Use
  Company Number: GB-BRISTOL-MYERS SQUIBB COMPANY-21011051

PATIENT
  Age: 37 Year
  Sex: Male

DRUGS (4)
  1. ARIPIPRAZOLE [Suspect]
     Indication: PSYCHOTIC DISORDER
     Route: 048
     Dates: start: 20101018, end: 20140522
  2. CLOZAPINE [Suspect]
     Route: 048
     Dates: start: 20110401, end: 20140522
  3. MEBEVERINE [Suspect]
     Indication: ABDOMINAL PAIN UPPER
     Route: 048
     Dates: start: 20101018, end: 20140522
  4. PANTOPRAZOLE [Suspect]
     Indication: EPIGASTRIC DISCOMFORT
     Route: 048
     Dates: start: 20101018, end: 20140522

REACTIONS (3)
  - Abdominal pain [None]
  - Hepatic failure [Recovered/Resolved]
  - Off label use [None]
